FAERS Safety Report 19292977 (Version 1)
Quarter: 2021Q2

REPORT INFORMATION
  Report Type: Spontaneous
  Country: US (occurrence: US)
  Receive Date: 20210524
  Receipt Date: 20210524
  Transmission Date: 20210717
  Serious: No
  Sender: FDA-Public Use
  Company Number: US-SA-2021SA169431

PATIENT
  Age: 40 Year
  Sex: Male

DRUGS (2)
  1. DUPIXENT [Suspect]
     Active Substance: DUPILUMAB
     Indication: CHRONIC RHINOSINUSITIS WITH NASAL POLYPS
     Dosage: UNK
     Route: 058
     Dates: start: 20210115, end: 2021
  2. DUPIXENT [Suspect]
     Active Substance: DUPILUMAB
     Dosage: UNK
     Route: 058
     Dates: start: 2021

REACTIONS (3)
  - Condition aggravated [Recovering/Resolving]
  - Nasal congestion [Recovering/Resolving]
  - Therapy interrupted [Recovering/Resolving]

NARRATIVE: CASE EVENT DATE: 2021
